FAERS Safety Report 5102416-7 (Version None)
Quarter: 2006Q3

REPORT INFORMATION
  Report Type: 
  Country: None (occurrence: None)
  Receive Date: 20060912
  Receipt Date: 20060906
  Transmission Date: 20061208
  Serious: Yes (Hospitalization)
  Sender: FDA-Public Use
  Company Number: IT-BRISTOL-MYERS SQUIBB COMPANY-13500723

PATIENT
  Age: 59 Year
  Sex: Female

DRUGS (1)
  1. DASATINIB [Suspect]

REACTIONS (1)
  - CEREBRAL HAEMORRHAGE [None]
